FAERS Safety Report 7867071-1 (Version None)
Quarter: 2011Q4

REPORT INFORMATION
  Report Type: 
  Country: None (occurrence: None)
  Receive Date: 20111028
  Receipt Date: 20111020
  Transmission Date: 20120403
  Serious: Yes (Hospitalization)
  Sender: FDA-Public Use
  Company Number: JP-EISAI INC-E7389-01457-SPO-JP

PATIENT
  Sex: Female
  Weight: 48 kg

DRUGS (10)
  1. AZUNOL GARGLE [Concomitant]
     Indication: STOMATITIS
     Dates: start: 20110813
  2. PREGABALIN [Concomitant]
     Indication: PAIN
     Route: 048
     Dates: start: 20110705, end: 20110912
  3. HALAVEN [Suspect]
     Indication: BREAST CANCER RECURRENT
     Dosage: UNKNOWN
     Route: 042
     Dates: start: 20110808
  4. PROGESTON [Concomitant]
     Indication: BREAST CANCER RECURRENT
     Route: 048
     Dates: start: 20110712
  5. NEW LECICARBON SUPP [Concomitant]
     Indication: CONSTIPATION
     Dates: start: 20110813, end: 20110912
  6. PANTOSIN [Concomitant]
     Indication: CONSTIPATION
     Route: 048
     Dates: start: 20110725, end: 20110912
  7. MAGMITT [Concomitant]
     Indication: CONSTIPATION
     Route: 048
     Dates: start: 20110725, end: 20110912
  8. CYMBALTA [Concomitant]
     Indication: DEPRESSION
     Route: 048
     Dates: start: 20110726
  9. CIFROQUINON [Concomitant]
     Indication: NEUTROPENIA
     Route: 048
     Dates: start: 20110815, end: 20110822
  10. AMLODIN OD [Concomitant]
     Indication: BREAST CANCER RECURRENT
     Route: 048
     Dates: start: 20110725, end: 20110912

REACTIONS (1)
  - INTERSTITIAL LUNG DISEASE [None]
